FAERS Safety Report 9350591 (Version 1)
Quarter: 2013Q2

REPORT INFORMATION
  Report Type: Spontaneous
  Country: US (occurrence: US)
  Receive Date: 20130617
  Receipt Date: 20130617
  Transmission Date: 20140414
  Serious: Yes (Other)
  Sender: FDA-Public Use
  Company Number: US-ACCORD-018035

PATIENT
  Age: 64 Year
  Sex: Female
  Weight: 65.91 kg

DRUGS (5)
  1. ESCITALOPRAM [Suspect]
     Indication: DEPRESSION
     Dosage: DURATION - 4-5 MONTHS.
     Route: 048
  2. TRAZODONE [Concomitant]
     Route: 048
  3. ADDERALL [Concomitant]
     Route: 048
  4. WELLBUTRIN [Concomitant]
     Route: 048
  5. CONCERTA [Concomitant]
     Route: 048

REACTIONS (7)
  - Bursitis [Not Recovered/Not Resolved]
  - Weight increased [Not Recovered/Not Resolved]
  - Tendonitis [Not Recovered/Not Resolved]
  - Musculoskeletal discomfort [Not Recovered/Not Resolved]
  - Musculoskeletal stiffness [Not Recovered/Not Resolved]
  - Musculoskeletal discomfort [Not Recovered/Not Resolved]
  - Musculoskeletal stiffness [Not Recovered/Not Resolved]
